FAERS Safety Report 9233858 (Version 1)
Quarter: 2013Q2

REPORT INFORMATION
  Report Type: Spontaneous
  Country: US (occurrence: US)
  Receive Date: 20130416
  Receipt Date: 20130416
  Transmission Date: 20140414
  Serious: Yes (Hospitalization, Other)
  Sender: FDA-Public Use
  Company Number: US-PFIZER INC-2013117882

PATIENT
  Age: 67 Year
  Sex: Male
  Weight: 66.67 kg

DRUGS (4)
  1. VFEND [Suspect]
     Indication: PULMONARY MYCOSIS
     Dosage: 200 MG, 2X/DAY
     Dates: start: 201301, end: 20130411
  2. METFORMIN [Concomitant]
     Dosage: 500 MG, 2X/DAY
  3. VERAPAMIL [Concomitant]
     Dosage: 40 MG DAILY
  4. LISINOPRIL [Concomitant]
     Dosage: 40 MG DAILY

REACTIONS (3)
  - Intestinal obstruction [Unknown]
  - Pleural effusion [Unknown]
  - Rash generalised [Recovering/Resolving]
